FAERS Safety Report 17437551 (Version 6)
Quarter: 2020Q2

REPORT INFORMATION
  Report Type: Report from Study
  Country: HU (occurrence: HU)
  Receive Date: 20200219
  Receipt Date: 20200430
  Transmission Date: 20200713
  Serious: Yes (Death, Hospitalization)
  Sender: FDA-Public Use
  Company Number: HU-PFIZER INC-2020065855

PATIENT
  Age: 57 Year
  Sex: Female
  Weight: 65 kg

DRUGS (16)
  1. DAUNORUBICIN HCL [Suspect]
     Active Substance: DAUNORUBICIN HYDROCHLORIDE
     Indication: ACUTE MYELOID LEUKAEMIA
     Dosage: 60 MG/M2, 1-7 DAYS/CYCLE
     Route: 042
     Dates: start: 20191016, end: 20191114
  2. RUBOPHEN [Concomitant]
     Indication: PYREXIA
     Dosage: 500 MG, AS NEEDED
     Route: 048
     Dates: start: 20200125
  3. CYTARABINE. [Suspect]
     Active Substance: CYTARABINE
     Dosage: 3000 MG/M2, FIRST CONSOLIDATION
     Route: 042
     Dates: start: 20191212, end: 20191216
  4. CYTARABINE. [Suspect]
     Active Substance: CYTARABINE
     Dosage: 2300 MG/M2, MOST RECENT DOSE
     Route: 042
     Dates: end: 20200118
  5. HERPESINE [Concomitant]
     Indication: ANTIVIRAL PROPHYLAXIS
     Dosage: 400 MG, 1X/DAY
     Route: 048
     Dates: start: 20191025
  6. DOLORAMOL [Concomitant]
     Indication: SCIATICA
     Dosage: 500 MG, AS NEEDED
     Route: 048
     Dates: start: 20200125
  7. TAZOCIN [Concomitant]
     Active Substance: PIPERACILLIN SODIUM\TAZOBACTAM SODIUM
     Indication: PYREXIA
     Dosage: 4.5 G, 3X/DAY
     Route: 042
     Dates: start: 20200125
  8. SALSOL [Concomitant]
     Active Substance: ALBUTEROL SULFATE
     Indication: SCIATICA
     Dosage: 500 ML, DAILY
     Route: 042
     Dates: start: 20200126
  9. RELAXIL-G [Concomitant]
     Indication: SCIATICA
     Dosage: 500 MG, DAILY
     Route: 042
     Dates: start: 20200126
  10. DUROGESIC [Concomitant]
     Active Substance: FENTANYL
     Indication: SCIATICA
     Dosage: 50 MICROGRAM, EVERY THREE DAYS
     Route: 003
     Dates: start: 20200130
  11. CYTARABINE. [Suspect]
     Active Substance: CYTARABINE
     Dosage: 100 MG/M2, SECOND INDUCTION
     Dates: start: 20191112, end: 20191118
  12. PLACEBO [Suspect]
     Active Substance: UNSPECIFIED INGREDIENT
     Indication: ACUTE MYELOID LEUKAEMIA
     Dosage: 100 MG, DAILY
     Route: 048
     Dates: start: 20191016, end: 20200210
  13. ALGOPYRIN [AMINOPHENAZONE] [Concomitant]
     Indication: SCIATICA
     Dosage: 500 MG, DAILY
     Route: 042
     Dates: start: 20200126
  14. CYTARABINE. [Suspect]
     Active Substance: CYTARABINE
     Indication: ACUTE MYELOID LEUKAEMIA
     Dosage: 100 MG/M2, 1-3 DAY/CYCLE, FIRST INDUCTION
     Route: 042
     Dates: start: 20191016, end: 20191022
  15. CYTARABINE. [Suspect]
     Active Substance: CYTARABINE
     Dosage: 2800 MG/M2, SECOND CONSOLIDATION
     Route: 042
     Dates: start: 20200114
  16. VANCOMYCIN [Concomitant]
     Active Substance: VANCOMYCIN
     Indication: PYREXIA
     Dosage: 1 G, DAILY
     Route: 042
     Dates: start: 20200126

REACTIONS (1)
  - Cardiac failure [Fatal]

NARRATIVE: CASE EVENT DATE: 20200211
